FAERS Safety Report 9096621 (Version 1)
Quarter: 2013Q1

REPORT INFORMATION
  Report Type: Spontaneous
  Country: US (occurrence: US)
  Receive Date: 20130211
  Receipt Date: 20130211
  Transmission Date: 20140127
  Serious: Yes (Hospitalization)
  Sender: FDA-Public Use
  Company Number: PHHY2013US010686

PATIENT
  Age: 49 Year
  Sex: Male
  Weight: 62.7 kg

DRUGS (2)
  1. LEVETIRACETAM [Suspect]
     Dosage: 22500 MG, UNK
  2. ALCOHOL [Concomitant]

REACTIONS (6)
  - Blood urea decreased [Recovered/Resolved]
  - Suicide attempt [Recovered/Resolved]
  - PCO2 decreased [Recovered/Resolved]
  - Respiratory rate decreased [Recovered/Resolved]
  - Anxiety [Recovered/Resolved]
  - Intentional overdose [Recovered/Resolved]
